FAERS Safety Report 7758521-X (Version None)
Quarter: 2011Q3

REPORT INFORMATION
  Report Type: 
  Country: None (occurrence: None)
  Receive Date: 20110825
  Receipt Date: 20110712
  Transmission Date: 20111222
  Serious: Yes (Other)
  Sender: FDA-Public Use
  Company Number: 329500

PATIENT
  Age: 58 Year
  Sex: Female
  Weight: 75.3 kg

DRUGS (13)
  1. LANTUS [Concomitant]
  2. GEMFIBROZIL [Concomitant]
  3. WARFARIN SODIUM [Concomitant]
  4. ZETIA [Concomitant]
  5. VICTOZA [Suspect]
     Indication: TYPE 2 DIABETES MELLITUS
     Dosage: SUBCUTANEOUS ; 1.8 MG, QD, SUBCUTANEOUS
     Route: 058
     Dates: start: 20110502, end: 20110511
  6. VICTOZA [Suspect]
     Indication: TYPE 2 DIABETES MELLITUS
     Dosage: SUBCUTANEOUS ; 1.8 MG, QD, SUBCUTANEOUS
     Route: 058
     Dates: start: 20110403
  7. KLONOPIN [Concomitant]
  8. VYTORIN [Concomitant]
  9. SALAGEN [Concomitant]
  10. CLARINEX /01202601/ (LORATADINE, PSEUDOEPHEDRINE SULFATE) [Concomitant]
  11. SYNTHROID [Concomitant]
  12. PERCOCET [Concomitant]
  13. ERGOCALCIFEROL [Concomitant]

REACTIONS (2)
  - PANCREATITIS ACUTE [None]
  - WEIGHT DECREASED [None]
